FAERS Safety Report 5559223-0 (Version None)
Quarter: 2007Q4

REPORT INFORMATION
  Report Type: 
  Country: None (occurrence: None)
  Receive Date: 20071214
  Receipt Date: 20070919
  Transmission Date: 20080405
  Serious: No
  Sender: FDA-Public Use
  Company Number: US-ABBOTT-07P-163-0418069-00

PATIENT
  Sex: Female
  Weight: 123 kg

DRUGS (11)
  1. HUMIRA [Suspect]
     Indication: RHEUMATOID ARTHRITIS
     Route: 058
     Dates: start: 20070628, end: 20070701
  2. HUMIRA [Suspect]
     Route: 058
     Dates: start: 20070701, end: 20070701
  3. HUMIRA [Suspect]
     Route: 058
     Dates: start: 20070701
  4. METHOTREXATE [Concomitant]
     Indication: RHEUMATOID ARTHRITIS
     Route: 048
  5. FOLIC ACID [Concomitant]
     Indication: RHEUMATOID ARTHRITIS
     Route: 048
  6. LISINOPRIL [Concomitant]
     Indication: BLOOD PRESSURE
     Route: 048
  7. FLUOXETINE HYDROCHLORIDE [Concomitant]
     Indication: DEPRESSION
     Route: 048
  8. ACETYLSALICYLIC ACID SRT [Concomitant]
     Indication: DRUG USE FOR UNKNOWN INDICATION
     Route: 048
  9. VALSARTAN [Concomitant]
     Indication: BLOOD PRESSURE
     Route: 048
  10. LOVASTATIN [Concomitant]
     Indication: BLOOD CHOLESTEROL
     Route: 048
  11. METOPROLOL [Concomitant]
     Indication: CARDIAC DISORDER
     Route: 048

REACTIONS (4)
  - COUGH [None]
  - LYMPHADENOPATHY [None]
  - OVERDOSE [None]
  - TEMPERATURE INTOLERANCE [None]
